FAERS Safety Report 14985854 (Version 3)
Quarter: 2018Q2

REPORT INFORMATION
  Report Type: Report from Study
  Country: US (occurrence: US)
  Receive Date: 20180607
  Receipt Date: 20180613
  Transmission Date: 20180711
  Serious: Yes (Hospitalization)
  Sender: FDA-Public Use
  Company Number: US-GILEAD-2018-0343096

PATIENT
  Age: 88 Year
  Sex: Female

DRUGS (12)
  1. ADCIRCA [Concomitant]
     Active Substance: TADALAFIL
  2. FUROSEMIDE. [Concomitant]
     Active Substance: FUROSEMIDE
  3. AMBRISENTAN [Suspect]
     Active Substance: AMBRISENTAN
     Indication: PULMONARY HYPERTENSION
     Dosage: 5 MG, QD
     Route: 065
     Dates: start: 20180511, end: 20180525
  4. SEROQUEL [Concomitant]
     Active Substance: QUETIAPINE FUMARATE
  5. METOPROLOL TARTRATE. [Concomitant]
     Active Substance: METOPROLOL TARTRATE
  6. POTASSIUM [Concomitant]
     Active Substance: POTASSIUM
  7. ELIQUIS [Concomitant]
     Active Substance: APIXABAN
  8. ATROVENT [Concomitant]
     Active Substance: IPRATROPIUM BROMIDE
  9. AMBRISENTAN [Suspect]
     Active Substance: AMBRISENTAN
     Dosage: 10 MG, QD
     Route: 065
     Dates: start: 20180127
  10. ASMANEX [Concomitant]
     Active Substance: MOMETASONE FUROATE
  11. RESTASIS [Concomitant]
     Active Substance: CYCLOSPORINE
  12. DIGOXIN. [Concomitant]
     Active Substance: DIGOXIN

REACTIONS (5)
  - Wheezing [Unknown]
  - Dyspnoea [Unknown]
  - Unevaluable event [Not Recovered/Not Resolved]
  - Chest discomfort [Unknown]
  - Oedema [Unknown]
